FAERS Safety Report 5548016-6 (Version None)
Quarter: 2007Q4

REPORT INFORMATION
  Report Type: 
  Country: None (occurrence: None)
  Receive Date: 20071211
  Receipt Date: 20071121
  Transmission Date: 20080405
  Serious: Yes (Hospitalization)
  Sender: FDA-Public Use
  Company Number: US-GENENTECH-252510

PATIENT
  Sex: Female
  Weight: 74.8 kg

DRUGS (20)
  1. BEVACIZUMAB [Suspect]
     Indication: COLORECTAL CANCER METASTATIC
     Dosage: 562.5 MG, Q3W
     Route: 042
     Dates: start: 20071029, end: 20071119
  2. CAPECITABINE [Suspect]
     Indication: COLORECTAL CANCER METASTATIC
     Dosage: 500 MG, BID
     Route: 048
     Dates: start: 20071029
  3. OXALIPLATIN [Suspect]
     Indication: COLORECTAL CANCER METASTATIC
     Dosage: 231.4 MG, Q3W
     Route: 042
     Dates: start: 20071029
  4. PHILLIPS' MOM [Concomitant]
     Indication: DRUG USE FOR UNKNOWN INDICATION
  5. LORTAB [Concomitant]
     Indication: DRUG USE FOR UNKNOWN INDICATION
  6. FISH OIL [Concomitant]
     Indication: DRUG USE FOR UNKNOWN INDICATION
  7. TYLENOL (CAPLET) [Concomitant]
     Indication: DRUG USE FOR UNKNOWN INDICATION
  8. AVANDIA [Concomitant]
     Indication: DRUG USE FOR UNKNOWN INDICATION
  9. ACIPHEX [Concomitant]
     Indication: DRUG USE FOR UNKNOWN INDICATION
  10. GLYBURIDE [Concomitant]
     Indication: DRUG USE FOR UNKNOWN INDICATION
  11. FUROSEMIDE [Concomitant]
     Indication: DRUG USE FOR UNKNOWN INDICATION
  12. FERROUS SULFATE TAB [Concomitant]
     Indication: DRUG USE FOR UNKNOWN INDICATION
  13. CAPTOPRIL [Concomitant]
     Indication: DRUG USE FOR UNKNOWN INDICATION
  14. LOFIBRA [Concomitant]
     Indication: DRUG USE FOR UNKNOWN INDICATION
  15. XALATAN [Concomitant]
     Indication: DRUG USE FOR UNKNOWN INDICATION
  16. TIMOLOL MALEATE [Concomitant]
     Indication: DRUG USE FOR UNKNOWN INDICATION
  17. BENADRYL [Concomitant]
     Indication: DRUG USE FOR UNKNOWN INDICATION
  18. YUCCA [Concomitant]
     Indication: DRUG USE FOR UNKNOWN INDICATION
  19. GLUCOSAMINE SULFATE [Concomitant]
     Indication: DRUG USE FOR UNKNOWN INDICATION
  20. VITAMIN TAB [Concomitant]
     Indication: DRUG USE FOR UNKNOWN INDICATION

REACTIONS (3)
  - ABDOMINAL PAIN [None]
  - HAEMATEMESIS [None]
  - MUCOSAL INFLAMMATION [None]
